FAERS Safety Report 7607945-X (Version None)
Quarter: 2011Q3

REPORT INFORMATION
  Report Type: 
  Country: None (occurrence: None)
  Receive Date: 20110714
  Receipt Date: 20110203
  Transmission Date: 20111222
  Serious: Yes (Hospitalization, Other)
  Sender: FDA-Public Use
  Company Number: US-BAYER-201042011NA

PATIENT
  Age: 26 Year
  Sex: Female
  Weight: 42.63 kg

DRUGS (26)
  1. VANCOMYCIN [Concomitant]
     Dosage: 750 MG, UNK
     Route: 048
     Dates: start: 20040313
  2. TRASYLOL [Suspect]
     Indication: MITRAL VALVE REPLACEMENT
     Dosage: 49 ML, PUMP PRIME
     Route: 042
     Dates: start: 20040314, end: 20040314
  3. CIPROFLOXACIN HCL [Concomitant]
     Dosage: 400 MG, QD
  4. PROTONIX [Concomitant]
     Dosage: 40 MG, QD
  5. NORCO [Concomitant]
     Dosage: 10/325 Q4HRS PRN
  6. OXACILLIN [Concomitant]
     Dosage: 2 G, Q4R
     Route: 042
     Dates: start: 20040314
  7. TRASYLOL [Suspect]
     Dosage: UNSPECIFIED AMOUNT, BOLUS
     Route: 042
     Dates: start: 20040314, end: 20040314
  8. PERIDEX [Concomitant]
     Dosage: 15 ML, UNK
     Route: 048
     Dates: start: 20040314
  9. DOBUTAMINE HCL [Concomitant]
     Dosage: UNK
     Route: 042
     Dates: start: 20040314, end: 20040314
  10. TECHNETIUM TC 99M DISOFENIN [Concomitant]
     Indication: HEPATOBILIARY SCAN
     Dosage: 5.15 MCI, UNK
     Dates: start: 20040317
  11. TRASYLOL [Suspect]
     Indication: CORONARY ARTERY BYPASS
     Dosage: 30CC/HR, INFUSION
     Route: 042
     Dates: start: 20040314, end: 20040314
  12. LOPRESSOR [Concomitant]
     Dosage: 2.5 MG, Q6H
     Dates: start: 20040314
  13. HEPARIN [Concomitant]
     Dosage: 20000 U, UNK
     Route: 042
     Dates: start: 20040314
  14. LOW-OGESTREL-28 [Concomitant]
     Dosage: UNK
     Route: 048
     Dates: start: 20100101
  15. VANCOMYCIN [Concomitant]
     Dosage: 2 G, UNK
     Route: 042
     Dates: start: 20040314
  16. GENTAMYCIN SULFATE [Concomitant]
     Dosage: UNK
     Route: 042
     Dates: start: 20040413
  17. PHENYLEPHRINE HCL [Concomitant]
     Dosage: UNK
     Route: 042
     Dates: start: 20040314, end: 20040315
  18. EPINEPHRINE [Concomitant]
     Dosage: UNK
     Route: 042
     Dates: start: 20040314, end: 20040316
  19. REGLAN [Concomitant]
     Dosage: 10 MG, UNK
     Route: 042
  20. BUMEX [Concomitant]
     Dosage: UNK
     Route: 042
     Dates: start: 20040316, end: 20040317
  21. INSULIN [Concomitant]
  22. CEFTRIAXONE [Concomitant]
     Dosage: 2 G, UNK
     Route: 042
     Dates: start: 20040313
  23. FLAGYL [Concomitant]
     Dosage: 500 MG, TID
     Route: 042
     Dates: start: 20040314
  24. NOREPINEPHRINE BITARTRATE [Concomitant]
     Dosage: UNK
     Route: 042
     Dates: start: 20040314, end: 20040314
  25. VASOPRESSIN [Concomitant]
     Dosage: UNK
     Route: 042
     Dates: start: 20040314, end: 20040316
  26. RED BLOOD CELLS [Concomitant]
     Dosage: 3 U, UNK
     Route: 042
     Dates: start: 20040314

REACTIONS (16)
  - PAIN [None]
  - NERVOUSNESS [None]
  - SCAR [None]
  - MULTI-ORGAN FAILURE [None]
  - UNEVALUABLE EVENT [None]
  - ANHEDONIA [None]
  - EMOTIONAL DISTRESS [None]
  - FEAR OF DEATH [None]
  - GENERAL PHYSICAL HEALTH DETERIORATION [None]
  - INJURY [None]
  - ANXIETY [None]
  - RENAL INJURY [None]
  - RENAL FAILURE [None]
  - RENAL FAILURE ACUTE [None]
  - FEAR [None]
  - DEPRESSION [None]
